FAERS Safety Report 4815162-1 (Version None)
Quarter: 2005Q4

REPORT INFORMATION
  Report Type: 
  Country: None (occurrence: None)
  Receive Date: 20051028
  Receipt Date: 20050617
  Transmission Date: 20060501
  Serious: Yes (Death, Hospitalization)
  Sender: FDA-Public Use
  Company Number: US-MERCK-0506USA02803

PATIENT
  Age: 69 Year
  Sex: Male
  Weight: 95 kg

DRUGS (14)
  1. VIOXX [Suspect]
     Indication: ARTHRITIS
     Route: 048
     Dates: start: 20030514, end: 20030605
  2. ASPIRIN [Concomitant]
     Indication: PAIN
     Route: 065
     Dates: start: 20030505, end: 20030601
  3. ALLEGRA [Concomitant]
     Indication: HYPERSENSITIVITY
     Route: 065
     Dates: start: 20030523
  4. AUGMENTIN '125' [Concomitant]
     Indication: ANTIBIOTIC PROPHYLAXIS
     Route: 065
     Dates: start: 20030526
  5. AVANDIA [Concomitant]
     Indication: DIABETES MELLITUS
     Route: 065
     Dates: start: 20010131
  6. BUMETANIDE [Concomitant]
     Indication: POLYURIA
     Route: 065
     Dates: start: 20030526
  7. COMBIVENT [Concomitant]
     Indication: RESPIRATORY DISORDER
     Route: 065
     Dates: start: 20030523
  8. ERY-TAB [Concomitant]
     Indication: ANTIBIOTIC PROPHYLAXIS
     Route: 065
     Dates: start: 20030107
  9. GERITOL TONIC LIQUID [Concomitant]
     Indication: POLYURIA
     Route: 065
     Dates: start: 20030512
  10. KLOR-CON [Concomitant]
     Indication: MINERAL SUPPLEMENTATION
     Route: 065
     Dates: start: 20030512
  11. NORVASC [Concomitant]
     Indication: CARDIAC DISORDER
     Route: 065
     Dates: start: 19990403, end: 20030601
  12. FUROSEMIDE [Concomitant]
     Indication: HYPERTENSION
     Route: 065
     Dates: start: 20030101, end: 20030601
  13. LANOXIN [Concomitant]
     Route: 065
     Dates: start: 20030428, end: 20030601
  14. EXTRA STRENGTH TYLENOL [Concomitant]
     Route: 065

REACTIONS (11)
  - ACUTE MYOCARDIAL INFARCTION [None]
  - BRONCHITIS [None]
  - CARDIAC FAILURE [None]
  - CARDIAC FAILURE CONGESTIVE [None]
  - CARDIOGENIC SHOCK [None]
  - CHEST DISCOMFORT [None]
  - LUNG INFILTRATION [None]
  - PAIN IN EXTREMITY [None]
  - PNEUMONIA [None]
  - PULMONARY EMBOLISM [None]
  - SYNCOPE [None]
